FAERS Safety Report 4436322-8 (Version None)
Quarter: 2004Q3

REPORT INFORMATION
  Report Type: 
  Country: None (occurrence: None)
  Receive Date: 20040830
  Receipt Date: 20040730
  Transmission Date: 20050211
  Serious: Yes (Other)
  Sender: FDA-Public Use
  Company Number: US-BRISTOL-MYERS SQUIBB COMPANY-12656641

PATIENT
  Age: 60 Year
  Sex: Male
  Weight: 91 kg

DRUGS (7)
  1. ERBITUX [Suspect]
     Indication: COLON CANCER METASTATIC
     Dates: start: 20040623, end: 20040623
  2. CAMPTOSAR [Concomitant]
     Indication: COLON CANCER METASTATIC
  3. BENADRYL [Concomitant]
     Indication: PREMEDICATION
     Route: 042
     Dates: start: 20040623, end: 20040623
  4. COUMADIN [Concomitant]
  5. ACTOS [Concomitant]
  6. MAGNESIUM [Concomitant]
  7. ZOCOR [Concomitant]

REACTIONS (1)
  - INTERSTITIAL LUNG DISEASE [None]
